FAERS Safety Report 12569544 (Version 1)
Quarter: 2016Q3

REPORT INFORMATION
  Report Type: Spontaneous
  Country: FI (occurrence: FI)
  Receive Date: 20160719
  Receipt Date: 20160719
  Transmission Date: 20161109
  Serious: Yes (Hospitalization)
  Sender: FDA-Public Use
  Company Number: FI-ORION CORPORATION ORION PHARMA-ENTC2016-0382

PATIENT
  Age: 66 Year
  Sex: Female

DRUGS (7)
  1. MADOPAR [Concomitant]
     Active Substance: BENSERAZIDE HYDROCHLORIDE\LEVODOPA
     Route: 065
  2. LEVODOPA/CARBIDOPA/ENTACAPONE ORION [Suspect]
     Active Substance: CARBIDOPA\ENTACAPONE\LEVODOPA
     Dosage: STRENGTH 50/12,5/200MG
     Route: 065
     Dates: start: 2016
  3. AMANTADIN [Concomitant]
     Active Substance: AMANTADINE
     Route: 065
  4. LEVODOPA/CARBIDOPA/ENTACAPONE ORION [Suspect]
     Active Substance: CARBIDOPA\ENTACAPONE\LEVODOPA
     Indication: PARKINSON^S DISEASE
     Dosage: STRENGTH 75/18,75/200MG
     Route: 065
     Dates: start: 2016
  5. THYROXIN [Concomitant]
     Active Substance: LEVOTHYROXINE
     Indication: HYPOTHYROIDISM
     Route: 065
  6. SIFROL [Concomitant]
     Active Substance: PRAMIPEXOLE
     Route: 065
  7. KETIPINOR [Concomitant]
     Active Substance: QUETIAPINE FUMARATE
     Route: 065

REACTIONS (4)
  - Alopecia [Unknown]
  - Musculoskeletal stiffness [Unknown]
  - Hair growth abnormal [Unknown]
  - Dyspnoea [Unknown]
